FAERS Safety Report 21784940 (Version 1)
Quarter: 2022Q4

REPORT INFORMATION
  Report Type: Spontaneous
  Country: US (occurrence: None)
  Receive Date: 20221227
  Receipt Date: 20221227
  Transmission Date: 20230113
  Serious: Yes (Hospitalization)
  Sender: FDA-Public Use
  Company Number: None

PATIENT
  Age: 36 Year
  Sex: Female
  Weight: 64.86 kg

DRUGS (2)
  1. VANCOMYCIN [Suspect]
     Active Substance: VANCOMYCIN
     Indication: Spinal cord abscess
     Dosage: FREQUENCY : 3 TIMES A DAY;?
  2. VANCOMYCIN [Suspect]
     Active Substance: VANCOMYCIN
     Indication: Granuloma

REACTIONS (3)
  - Infusion related reaction [None]
  - Rash [None]
  - Dyspnoea [None]

NARRATIVE: CASE EVENT DATE: 20221115
